FAERS Safety Report 7131616-X (Version None)
Quarter: 2010Q4

REPORT INFORMATION
  Report Type: 
  Country: None (occurrence: None)
  Receive Date: 20101201
  Receipt Date: 20101123
  Transmission Date: 20110411
  Serious: Yes (Other)
  Sender: FDA-Public Use
  Company Number: US-GENENTECH-310183

PATIENT
  Sex: Female

DRUGS (2)
  1. RITUXAN [Suspect]
     Indication: IDIOPATHIC THROMBOCYTOPENIC PURPURA
     Dosage: UNK
     Dates: start: 20070101, end: 20070101
  2. RITUXAN [Suspect]
     Dosage: UNK
     Dates: start: 20080101, end: 20080101

REACTIONS (1)
  - LYMPHOPROLIFERATIVE DISORDER [None]
